FAERS Safety Report 5521685-2 (Version None)
Quarter: 2007Q4

REPORT INFORMATION
  Report Type: 
  Country: None (occurrence: None)
  Receive Date: 20071120
  Receipt Date: 20071112
  Transmission Date: 20080405
  Serious: Yes (Other)
  Sender: FDA-Public Use
  Company Number: PHEH2006US12309

PATIENT
  Age: 64 Year
  Sex: Female
  Weight: 93.877 kg

DRUGS (4)
  1. AREDIA [Suspect]
     Indication: RESORPTION BONE INCREASED
     Dosage: 90 MG MONTHLY
  2. ZOMETA [Suspect]
  3. NORVASC [Concomitant]
     Dosage: 2.5 MG, UNK
  4. MAXZIDE [Concomitant]
     Dosage: ^25/375 MG^ BID

REACTIONS (19)
  - ALVEOLOPLASTY [None]
  - ANAEMIA OF CHRONIC DISEASE [None]
  - ANXIETY [None]
  - ARTERIOVENOUS SHUNT OPERATION [None]
  - BIOPSY [None]
  - BLOOD CREATININE INCREASED [None]
  - BONE DISORDER [None]
  - DIALYSIS [None]
  - INJURY [None]
  - NEPHROPATHY TOXIC [None]
  - OPEN WOUND [None]
  - OSTEOMYELITIS [None]
  - OSTEONECROSIS [None]
  - PAIN [None]
  - PHYSICAL DISABILITY [None]
  - PROTEINURIA [None]
  - RENAL FAILURE CHRONIC [None]
  - TOOTH DISORDER [None]
  - TOOTH EXTRACTION [None]
